FAERS Safety Report 7317137-X (Version None)
Quarter: 2011Q1

REPORT INFORMATION
  Report Type: 
  Country: None (occurrence: None)
  Receive Date: 20110226
  Receipt Date: 20100929
  Transmission Date: 20110831
  Serious: No
  Sender: FDA-Public Use
  Company Number: US-ALLERGAN-1012566US

PATIENT
  Age: 80 Year
  Sex: Male

DRUGS (2)
  1. BOTOXA? [Suspect]
     Indication: MUSCLE SPASTICITY
     Dosage: 175 UNITS, SINGLE
     Route: 030
     Dates: start: 20090101, end: 20090101
  2. BOTOXA? [Suspect]
     Dosage: 175 UNITS, SINGLE
     Route: 030
     Dates: start: 20090701, end: 20090701

REACTIONS (2)
  - STOMATITIS [None]
  - APHTHOUS STOMATITIS [None]
